FAERS Safety Report 5966109-6 (Version None)
Quarter: 2008Q4

REPORT INFORMATION
  Report Type: 
  Country: None (occurrence: None)
  Receive Date: 20081125
  Receipt Date: 20081112
  Transmission Date: 20090506
  Serious: Yes (Hospitalization)
  Sender: FDA-Public Use
  Company Number: US-ELI_LILLY_AND_COMPANY-US200810002881

PATIENT
  Age: 50 Year
  Sex: Male

DRUGS (6)
  1. ALIMTA [Suspect]
     Indication: NON-SMALL CELL LUNG CANCER METASTATIC
     Dosage: UNK, UNK
     Route: 042
  2. ALIMTA [Suspect]
     Dosage: 500 MG, UNK
     Route: 042
  3. TARCEVA [Concomitant]
     Indication: NON-SMALL CELL LUNG CANCER METASTATIC
     Dosage: 250 MG, UNK
     Route: 048
     Dates: start: 20080101, end: 20080101
  4. NAVELBINE [Concomitant]
     Indication: NON-SMALL CELL LUNG CANCER METASTATIC
  5. VITAMIN B-12 [Concomitant]
  6. FOLIC ACID [Concomitant]

REACTIONS (1)
  - PANCREATITIS [None]
